FAERS Safety Report 5326891-8 (Version None)
Quarter: 2007Q2

REPORT INFORMATION
  Report Type: 
  Country: None (occurrence: None)
  Receive Date: 20070511
  Receipt Date: 20070430
  Transmission Date: 20071010
  Serious: Yes (Death, Hospitalization)
  Sender: FDA-Public Use
  Company Number: 2007-01247

PATIENT
  Age: 69 Year
  Sex: Female
  Weight: 47 kg

DRUGS (7)
  1. VELCADE [Suspect]
     Indication: MULTIPLE MYELOMA
     Dosage: 1.81 MG, INTRAVENOUS
     Route: 042
     Dates: start: 20070319, end: 20070419
  2. METRONIDAZOLE [Concomitant]
  3. TEICOPLANIN (TEICOPLANIN) [Concomitant]
  4. MEROPENEM (MEROPENEM) [Concomitant]
  5. SPORANOX [Concomitant]
  6. CILASTATIN SODIUM W/IMIPENEM (IMIPENEM, CILASTATIN SODIUM) [Concomitant]
  7. AMPHOTERICIN B [Concomitant]

REACTIONS (3)
  - CARDIAC ARREST [None]
  - PNEUMONIA [None]
  - SEPTIC SHOCK [None]
